FAERS Safety Report 4351313-3 (Version None)
Quarter: 2004Q2

REPORT INFORMATION
  Report Type: 
  Country: None (occurrence: None)
  Receive Date: 20040428
  Receipt Date: 20040416
  Transmission Date: 20050107
  Serious: Yes (Hospitalization)
  Sender: FDA-Public Use
  Company Number: US-JNJFOC-20040402098

PATIENT
  Age: 25 Year
  Sex: Male

DRUGS (6)
  1. INFLIXIMAB, RECOMBINANT- BLINDED (INFLIXIMAB, RECOMBINANT) LYOPHILIZED [Suspect]
     Indication: PSORIASIS
     Dosage: INTRAVENOUS
     Route: 042
     Dates: start: 20040205
  2. PLACEBO (PLACEBO) LYOPHILIZED POWDER [Suspect]
     Indication: PSORIASIS
     Dosage: INTRAVENOUS
     Route: 042
     Dates: start: 20040205
  3. CORTISONE CREAM (CORTISONE) [Concomitant]
  4. PREDNISONE [Concomitant]
  5. ATARAX [Concomitant]
  6. PENICILLIN [Concomitant]

REACTIONS (11)
  - BURNING SENSATION [None]
  - CELLULITIS [None]
  - CONDITION AGGRAVATED [None]
  - DISEASE PROGRESSION [None]
  - ERYTHEMA [None]
  - OEDEMA PERIPHERAL [None]
  - OPPORTUNISTIC INFECTION [None]
  - PAIN [None]
  - PRURITUS [None]
  - PSORIASIS [None]
  - SUPERINFECTION [None]
